FAERS Safety Report 7763084-9 (Version None)
Quarter: 2011Q3

REPORT INFORMATION
  Report Type: 
  Country: None (occurrence: None)
  Receive Date: 20110920
  Receipt Date: 20110916
  Transmission Date: 20111222
  Serious: Yes (Other)
  Sender: FDA-Public Use
  Company Number: GB-PFIZER INC-2011211862

PATIENT
  Sex: Male

DRUGS (2)
  1. ACETAMINOPHEN [Suspect]
     Dosage: UNK
  2. VARENICLINE TARTRATE [Suspect]
     Dosage: UNK
     Dates: start: 20110601

REACTIONS (1)
  - HAEMATURIA [None]
